FAERS Safety Report 12356127 (Version 2)
Quarter: 2016Q2

REPORT INFORMATION
  Report Type: Spontaneous
  Country: CA (occurrence: CA)
  Receive Date: 20160511
  Receipt Date: 20160616
  Transmission Date: 20160815
  Serious: Yes (Death, Hospitalization, Other)
  Sender: FDA-Public Use
  Company Number: CA-INCYTE CORPORATION-2016IN002554

PATIENT
  Age: 70 Year
  Sex: Male

DRUGS (2)
  1. JAKAFI [Suspect]
     Active Substance: RUXOLITINIB
     Indication: PRIMARY MYELOFIBROSIS
     Dosage: 5 MG, BID
     Route: 048
     Dates: end: 20160417
  2. JAKAFI [Suspect]
     Active Substance: RUXOLITINIB
     Indication: JANUS KINASE 2 MUTATION
     Dosage: 10 MG, UNK
     Route: 048
     Dates: start: 201401

REACTIONS (11)
  - Anaemia [Unknown]
  - Respiratory failure [Unknown]
  - Malaise [Unknown]
  - Abdominal pain [Unknown]
  - Lactic acidosis [Unknown]
  - Infection [Fatal]
  - Pyrexia [Unknown]
  - Loss of consciousness [Unknown]
  - Cytopenia [Unknown]
  - Neutropenia [Unknown]
  - Splenomegaly [Unknown]

NARRATIVE: CASE EVENT DATE: 20160414
